FAERS Safety Report 11125247 (Version 3)
Quarter: 2015Q2

REPORT INFORMATION
  Report Type: Report from Study
  Country: US (occurrence: US)
  Receive Date: 20150520
  Receipt Date: 20150618
  Transmission Date: 20150821
  Serious: No
  Sender: FDA-Public Use
  Company Number: US-ABBVIE-15P-163-1391109-00

PATIENT
  Age: 24 Year
  Sex: Female
  Weight: 61 kg

DRUGS (1)
  1. HUMIRA [Suspect]
     Active Substance: ADALIMUMAB
     Indication: CROHN^S DISEASE
     Route: 065
     Dates: start: 2010, end: 2015

REACTIONS (13)
  - Eye pain [Unknown]
  - Crohn^s disease [Recovering/Resolving]
  - Arthralgia [Not Recovered/Not Resolved]
  - Abdominal pain upper [Not Recovered/Not Resolved]
  - Influenza [Recovered/Resolved]
  - Pain [Unknown]
  - Mood swings [Unknown]
  - Rash [Unknown]
  - Depression [Unknown]
  - Bronchitis [Recovered/Resolved]
  - Decreased appetite [Unknown]
  - Food allergy [Unknown]
  - Headache [Unknown]

NARRATIVE: CASE EVENT DATE: 201505
